FAERS Safety Report 7024024-3 (Version None)
Quarter: 2010Q4

REPORT INFORMATION
  Report Type: 
  Country: None (occurrence: None)
  Receive Date: 20101001
  Receipt Date: 20100921
  Transmission Date: 20110411
  Serious: No
  Sender: FDA-Public Use
  Company Number: JP-JNJFOC-20100905081

PATIENT
  Age: 53 Year
  Sex: Female

DRUGS (5)
  1. DUROTEP MT [Suspect]
     Indication: CANCER PAIN
     Route: 062
  2. DUROTEP MT [Suspect]
     Route: 062
  3. FLURBIPROFEN [Concomitant]
     Route: 065
  4. DEPAKENE [Concomitant]
     Route: 048
  5. FAMOTIDINE [Concomitant]
     Route: 065

REACTIONS (3)
  - SOMNOLENCE [None]
  - THERAPY NAIVE [None]
  - WRONG TECHNIQUE IN DRUG USAGE PROCESS [None]
